FAERS Safety Report 25738402 (Version 1)
Quarter: 2025Q3

REPORT INFORMATION
  Report Type: Spontaneous
  Country: US (occurrence: US)
  Receive Date: 20250829
  Receipt Date: 20250829
  Transmission Date: 20251021
  Serious: No
  Sender: SANDOZ
  Company Number: US-SANDOZ-SDZ2025US061617

PATIENT
  Sex: Female
  Weight: 46.36 kg

DRUGS (1)
  1. ALBUTEROL SULFATE [Suspect]
     Active Substance: ALBUTEROL SULFATE
     Indication: Dyspnoea
     Route: 048
     Dates: start: 202508

REACTIONS (3)
  - Drug dose omission by device [Unknown]
  - Device issue [Unknown]
  - Device delivery system issue [Unknown]
